FAERS Safety Report 25069841 (Version 1)
Quarter: 2025Q1

REPORT INFORMATION
  Report Type: Spontaneous
  Country: US (occurrence: US)
  Receive Date: 20250312
  Receipt Date: 20250312
  Transmission Date: 20250409
  Serious: Yes (Hospitalization, Other)
  Sender: SANOFI AVENTIS
  Company Number: US-SA-2025SA072776

PATIENT
  Age: 67 Year
  Sex: Male

DRUGS (32)
  1. MIFEPRISTONE [Suspect]
     Active Substance: MIFEPRISTONE
     Indication: Cushing^s syndrome
     Dosage: 300 MG, QD
     Route: 048
     Dates: start: 20240103
  2. LANTUS [Suspect]
     Active Substance: INSULIN GLARGINE
     Indication: Product used for unknown indication
  3. METOPROLOL SUCCINATE [Concomitant]
     Active Substance: METOPROLOL SUCCINATE
  4. HYDROCHLOROTHIAZIDE\IRBESARTAN [Concomitant]
     Active Substance: HYDROCHLOROTHIAZIDE\IRBESARTAN
  5. ROSUVASTATIN [Concomitant]
     Active Substance: ROSUVASTATIN
  6. FENOFIBRATE [Concomitant]
     Active Substance: FENOFIBRATE
  7. TRAZODONE [Concomitant]
     Active Substance: TRAZODONE HYDROCHLORIDE
  8. MOUNJARO [Concomitant]
     Active Substance: TIRZEPATIDE
  9. FLUTICASONE [Concomitant]
     Active Substance: FLUTICASONE
  10. PROVENTIL HFA [Concomitant]
     Active Substance: ALBUTEROL SULFATE
  11. MUCINEX [Concomitant]
     Active Substance: GUAIFENESIN
  12. GINKGO [Concomitant]
     Active Substance: GINKGO
  13. OMEGA 3 KRILL OIL [Concomitant]
  14. OSTEO BI-FLEX [CHONDROITIN SULFATE;GLUCOSAMINE HYDROCHLORIDE] [Concomitant]
  15. MAGNESIUM [Concomitant]
     Active Substance: MAGNESIUM
  16. VITAMINS NOS [Concomitant]
     Active Substance: VITAMINS
  17. OXITRIPTAN [Concomitant]
     Active Substance: OXITRIPTAN
  18. COQ10 UBIQUINOL [Concomitant]
  19. HERBALS\SAW PALMETTO [Concomitant]
     Active Substance: HERBALS\SAW PALMETTO
  20. FOLIC ACID [Concomitant]
     Active Substance: FOLIC ACID
  21. HERBALS\TURMERIC [Concomitant]
     Active Substance: HERBALS\TURMERIC
  22. CINNAMON\HERBALS [Concomitant]
     Active Substance: CINNAMON\HERBALS
  23. ASPIRIN [Concomitant]
     Active Substance: ASPIRIN
  24. SPIRONOLACTONE [Concomitant]
     Active Substance: SPIRONOLACTONE
  25. ENTRESTO [Concomitant]
     Active Substance: SACUBITRIL\VALSARTAN
  26. TORSEMIDE [Concomitant]
     Active Substance: TORSEMIDE
  27. POTASSIUM CHLORIDE [Concomitant]
     Active Substance: POTASSIUM CHLORIDE
  28. OMEPRAZOLE [Concomitant]
     Active Substance: OMEPRAZOLE
  29. CARVEDILOL [Concomitant]
     Active Substance: CARVEDILOL
  30. ZEGERID [Concomitant]
     Active Substance: OMEPRAZOLE\SODIUM BICARBONATE
  31. ALKA-SELTZER [Concomitant]
     Active Substance: ANHYDROUS CITRIC ACID\ASPIRIN\SODIUM BICARBONATE
  32. MINERALS\VITAMINS [Concomitant]
     Active Substance: MINERALS\VITAMINS

REACTIONS (4)
  - Heart failure with reduced ejection fraction [Not Recovered/Not Resolved]
  - Dyspnoea [Recovering/Resolving]
  - Pleural effusion [Unknown]
  - Hypoglycaemia [Recovered/Resolved]

NARRATIVE: CASE EVENT DATE: 20241201
